FAERS Safety Report 9486907 (Version 1)
Quarter: 2013Q3

REPORT INFORMATION
  Report Type: Spontaneous
  Country: US (occurrence: US)
  Receive Date: 20130829
  Receipt Date: 20130829
  Transmission Date: 20140515
  Serious: Yes (Hospitalization)
  Sender: FDA-Public Use
  Company Number: US-FRI-1000048122

PATIENT
  Age: 85 Year
  Sex: Female

DRUGS (1)
  1. LINZESS [Suspect]
     Dosage: 145MCG

REACTIONS (1)
  - Colitis ischaemic [Unknown]
